FAERS Safety Report 15979746 (Version 3)
Quarter: 2019Q2

REPORT INFORMATION
  Report Type: Spontaneous
  Country: US (occurrence: US)
  Receive Date: 20190219
  Receipt Date: 20190405
  Transmission Date: 20190711
  Serious: No
  Sender: FDA-Public Use
  Company Number: US-IPSEN BIOPHARMACEUTICALS, INC.-2019-02308

PATIENT
  Age: 39 Year
  Sex: Female

DRUGS (2)
  1. SOMATULINE [Suspect]
     Active Substance: LANREOTIDE ACETATE
     Indication: ACROMEGALY
     Dosage: 90/0.3 ML
     Route: 065
     Dates: start: 201901, end: 201903
  2. SOMATULINE [Suspect]
     Active Substance: LANREOTIDE ACETATE
     Route: 065
     Dates: start: 2019

REACTIONS (2)
  - Pharyngitis streptococcal [Unknown]
  - Blood glucose decreased [Unknown]

NARRATIVE: CASE EVENT DATE: 20190212
